FAERS Safety Report 5070797-9 (Version None)
Quarter: 2006Q3

REPORT INFORMATION
  Report Type: 
  Country: None (occurrence: None)
  Receive Date: 20060804
  Receipt Date: 20060412
  Transmission Date: 20061208
  Serious: No
  Sender: FDA-Public Use
  Company Number: US-GLAXOSMITHKLINE-A0601543A

PATIENT
  Age: 75 Year
  Sex: Female

DRUGS (3)
  1. NICORETTE (MINT) [Suspect]
     Dates: start: 20060222
  2. NICODERM CQ [Suspect]
     Dates: start: 20060412, end: 20060412
  3. COUMADIN [Concomitant]

REACTIONS (3)
  - DRUG INEFFECTIVE [None]
  - GINGIVAL PAIN [None]
  - TOOTH FRACTURE [None]
